FAERS Safety Report 8444761-3 (Version None)
Quarter: 2012Q2

REPORT INFORMATION
  Report Type: 
  Country: None (occurrence: None)
  Receive Date: 20120612
  Receipt Date: 20120612
  Transmission Date: 20120825
  Serious: Yes (Other)
  Sender: FDA-Public Use
  Company Number: None

PATIENT
  Sex: Female
  Weight: 113.8529 kg

DRUGS (1)
  1. XOLAIR [Suspect]
     Indication: ASTHMA
     Dosage: 225MG EVERY 2 WEEK SUB-Q
     Route: 058
     Dates: start: 20091001, end: 20120529

REACTIONS (2)
  - RASH PRURITIC [None]
  - RASH GENERALISED [None]
